FAERS Safety Report 17444625 (Version 1)
Quarter: 2020Q1

REPORT INFORMATION
  Report Type: Spontaneous
  Country: US (occurrence: US)
  Receive Date: 20200221
  Receipt Date: 20200221
  Transmission Date: 20200409
  Serious: No
  Sender: FDA-Public Use
  Company Number: US-TEVA-2020-US-1187542

PATIENT
  Age: 58 Year
  Sex: Female

DRUGS (1)
  1. TRAMADOL HYDROCHLORIDE TEVA [Suspect]
     Active Substance: TRAMADOL HYDROCHLORIDE
     Indication: PIRIFORMIS SYNDROME
     Route: 065

REACTIONS (1)
  - Sitting disability [Unknown]
